FAERS Safety Report 9477275 (Version 2)
Quarter: 2013Q3

REPORT INFORMATION
  Report Type: Spontaneous
  Country: US (occurrence: US)
  Receive Date: 20130826
  Receipt Date: 20130826
  Transmission Date: 20140515
  Serious: Yes (Death, Hospitalization)
  Sender: FDA-Public Use
  Company Number: US-BAXTER-2013BAX031076

PATIENT
  Age: 65 Year
  Sex: Female

DRUGS (1)
  1. DIANEAL LOW CALCIUM [Suspect]
     Indication: PERITONEAL DIALYSIS
     Route: 033
     Dates: start: 201209, end: 20130805

REACTIONS (4)
  - Death [Fatal]
  - Transient ischaemic attack [Unknown]
  - Venous occlusion [Unknown]
  - Regurgitation [Unknown]
